FAERS Safety Report 6148064-1 (Version None)
Quarter: 2009Q2

REPORT INFORMATION
  Report Type: 
  Country: None (occurrence: None)
  Receive Date: 20090408
  Receipt Date: 20090403
  Transmission Date: 20091009
  Serious: Yes (Other)
  Sender: FDA-Public Use
  Company Number: B0558221A

PATIENT
  Sex: Male
  Weight: 36 kg

DRUGS (1)
  1. RELENZA [Suspect]
     Indication: INFLUENZA
     Dosage: 10MG TWICE PER DAY
     Route: 055
     Dates: start: 20090130, end: 20090130

REACTIONS (3)
  - DELIRIUM [None]
  - HALLUCINATION [None]
  - SLEEP DISORDER [None]
